FAERS Safety Report 8580249-7 (Version None)
Quarter: 2012Q3

REPORT INFORMATION
  Report Type: 
  Country: None (occurrence: None)
  Receive Date: 20120808
  Receipt Date: 20120724
  Transmission Date: 20120928
  Serious: Yes (Other)
  Sender: FDA-Public Use
  Company Number: CHPA2012US016655

PATIENT
  Age: 51 Year
  Sex: Female

DRUGS (6)
  1. PREVACID [Concomitant]
     Dosage: UNK, UNK
  2. EXCEDRIN BACK \+ BODY CAPLETS [Suspect]
     Dosage: 1 DF, ONCE/SINGLE
     Route: 048
     Dates: start: 20120724, end: 20120724
  3. DRUG THERAPY NOS [Concomitant]
     Dosage: UNK, UNK
  4. THYROID THERAPY [Concomitant]
     Indication: THYROID DISORDER
     Dosage: UNK, UNK
  5. EXCEDRIN BACK \+ BODY CAPLETS [Suspect]
     Indication: MIGRAINE
     Dosage: UNK, UNK
     Route: 048
     Dates: start: 20120601
  6. ESTROGEN NOS [Concomitant]
     Indication: HYSTERECTOMY
     Dosage: UNK, UNK

REACTIONS (3)
  - BRONCHITIS [None]
  - DRUG INEFFECTIVE [None]
  - UNDERDOSE [None]
